FAERS Safety Report 10712989 (Version 1)
Quarter: 2015Q1

REPORT INFORMATION
  Report Type: Spontaneous
  Country: US (occurrence: None)
  Receive Date: 20150114
  Receipt Date: 20150114
  Transmission Date: 20150721
  Serious: Yes (Life-Threatening, Hospitalization)
  Sender: FDA-Public Use
  Company Number: None

PATIENT
  Age: 27 Year
  Sex: Female

DRUGS (4)
  1. HUMALOG [Concomitant]
     Active Substance: INSULIN LISPRO
  2. LANTUS [Concomitant]
     Active Substance: INSULIN GLARGINE
  3. INVOKANA [Suspect]
     Active Substance: CANAGLIFLOZIN
     Indication: WEIGHT LOSS DIET
     Dosage: ONE QD ORAL
     Route: 048
  4. INVOKANA [Suspect]
     Active Substance: CANAGLIFLOZIN
     Indication: OFF LABEL USE
     Dosage: ONE QD ORAL
     Route: 048

REACTIONS (6)
  - Vomiting [None]
  - Nausea [None]
  - Blood glucose decreased [None]
  - Diabetic ketoacidosis [None]
  - Upper respiratory tract infection [None]
  - Off label use [None]

NARRATIVE: CASE EVENT DATE: 20150110
